FAERS Safety Report 5343166-1 (Version None)
Quarter: 2007Q2

REPORT INFORMATION
  Report Type: 
  Country: None (occurrence: None)
  Receive Date: 20070416
  Receipt Date: 20070226
  Transmission Date: 20071010
  Serious: No
  Sender: FDA-Public Use
  Company Number: 2007SP000646

PATIENT
  Age: 85 Year
  Sex: Female
  Weight: 72.5755 kg

DRUGS (8)
  1. LUNESTA [Suspect]
     Indication: SLEEP DISORDER
     Dosage: 3 MG;HS;ORAL
     Route: 048
     Dates: start: 20070222
  2. ATIVAN [Concomitant]
  3. FLOVENT [Concomitant]
  4. COMBIVENT /JOR/ [Concomitant]
  5. LASIX [Concomitant]
  6. POTASSIUM ACETATE [Concomitant]
  7. ATORVASTATIN CALCIUM [Concomitant]
  8. ZOLOFT [Concomitant]

REACTIONS (4)
  - DRUG INEFFECTIVE [None]
  - DYSGEUSIA [None]
  - INSOMNIA [None]
  - POOR QUALITY SLEEP [None]
